FAERS Safety Report 17880549 (Version 1)
Quarter: 2020Q2

REPORT INFORMATION
  Report Type: Spontaneous
  Country: US (occurrence: US)
  Receive Date: 20200609
  Receipt Date: 20200609
  Transmission Date: 20200714
  Serious: No
  Sender: FDA-Public Use
  Company Number: None

PATIENT
  Age: 81 Year
  Sex: Male

DRUGS (1)
  1. ERLOTINIB 150 MG TABS [Suspect]
     Active Substance: ERLOTINIB
     Route: 048
     Dates: start: 2018

REACTIONS (1)
  - Localised infection [None]

NARRATIVE: CASE EVENT DATE: 20200601
